FAERS Safety Report 9435368 (Version 4)
Quarter: 2014Q1

REPORT INFORMATION
  Report Type: Spontaneous
  Country: US (occurrence: US)
  Receive Date: 20130801
  Receipt Date: 20140127
  Transmission Date: 20141002
  Serious: Yes (Other)
  Sender: FDA-Public Use
  Company Number: US-GLAXOSMITHKLINE-A1035429A

PATIENT
  Age: 66 Year
  Sex: Male

DRUGS (4)
  1. ADVAIR [Suspect]
     Indication: CHRONIC OBSTRUCTIVE PULMONARY DISEASE
     Dosage: 1PUFF TWICE PER DAY
     Route: 055
  2. COMBIVENT [Concomitant]
  3. LISINOPRIL [Concomitant]
  4. GLIPIZIDE [Concomitant]

REACTIONS (6)
  - Lung neoplasm malignant [Not Recovered/Not Resolved]
  - Dyspnoea [Recovering/Resolving]
  - Cough [Unknown]
  - Off label use [Not Recovered/Not Resolved]
  - Dyspnoea exertional [Unknown]
  - Product quality issue [Unknown]
